FAERS Safety Report 11567859 (Version 1)
Quarter: 2015Q3

REPORT INFORMATION
  Report Type: Spontaneous
  Country: US (occurrence: None)
  Receive Date: 20150925
  Receipt Date: 20150925
  Transmission Date: 20151125
  Serious: Yes (Hospitalization, Other)
  Sender: FDA-Public Use
  Company Number: US-ZYDUS-009071

PATIENT
  Age: 15 Month
  Sex: Female

DRUGS (1)
  1. BUPROPION (BUPROPION) [Suspect]
     Active Substance: BUPROPION
     Indication: PRODUCT USED FOR UNKNOWN INDICATION
     Route: 048

REACTIONS (23)
  - Sinus tachycardia [None]
  - Rhinorrhoea [None]
  - Quadriparesis [None]
  - Body temperature decreased [None]
  - Pupil fixed [None]
  - Cardio-respiratory arrest [None]
  - Cough [None]
  - Lactic acidosis [None]
  - Blindness cortical [None]
  - CSF red blood cell count positive [None]
  - Blood pressure decreased [None]
  - Alanine aminotransferase increased [None]
  - CSF glucose increased [None]
  - Status epilepticus [None]
  - Hypoxic-ischaemic encephalopathy [None]
  - Areflexia [None]
  - Aspartate aminotransferase increased [None]
  - Accidental overdose [None]
  - Gaze palsy [None]
  - Unresponsive to stimuli [None]
  - Drug screen false positive [None]
  - Apnoea [None]
  - Metabolic acidosis [None]
